FAERS Safety Report 9753718 (Version 2)
Quarter: 2015Q3

REPORT INFORMATION
  Report Type: Spontaneous
  Country: US (occurrence: US)
  Receive Date: 20131213
  Receipt Date: 20150805
  Transmission Date: 20151125
  Serious: No
  Sender: FDA-Public Use
  Company Number: US-GILEAD-2010-0026517

PATIENT
  Age: 60 Year
  Sex: Female
  Weight: 60.78 kg

DRUGS (20)
  1. FUROSEMIDE. [Concomitant]
     Active Substance: FUROSEMIDE
  2. REVATIO [Concomitant]
     Active Substance: SILDENAFIL CITRATE
  3. LODINE [Concomitant]
     Active Substance: ETODOLAC
  4. PROBIOTIC COMPLEX CAPSULE [Concomitant]
  5. VITAMIN D + C [Concomitant]
  6. LETAIRIS [Suspect]
     Active Substance: AMBRISENTAN
     Route: 048
     Dates: start: 20091221
  7. REMICADE [Concomitant]
     Active Substance: INFLIXIMAB
  8. MAVIK [Concomitant]
     Active Substance: TRANDOLAPRIL
  9. LETAIRIS [Suspect]
     Active Substance: AMBRISENTAN
     Indication: PULMONARY ARTERIAL HYPERTENSION
     Route: 048
  10. SYNTHROID [Concomitant]
     Active Substance: LEVOTHYROXINE SODIUM
  11. HUMALOG [Concomitant]
     Active Substance: INSULIN LISPRO
  12. LEVEMIR [Concomitant]
     Active Substance: INSULIN DETEMIR
  13. ARAVA [Concomitant]
     Active Substance: LEFLUNOMIDE
  14. PRILOSEC [Concomitant]
     Active Substance: OMEPRAZOLE MAGNESIUM
  15. VITAMIN E [Concomitant]
     Active Substance: .ALPHA.-TOCOPHEROL
  16. FOSAMAX [Concomitant]
     Active Substance: ALENDRONATE SODIUM
  17. POTASSIUM CHLORIDE. [Concomitant]
     Active Substance: POTASSIUM CHLORIDE
  18. CALCIUM [Concomitant]
     Active Substance: CALCIUM
  19. MULTIVITAMIN [Concomitant]
     Active Substance: VITAMINS
  20. PRAVASTATIN [Concomitant]
     Active Substance: PRAVASTATIN\PRAVASTATIN SODIUM

REACTIONS (1)
  - Dry mouth [Unknown]
